FAERS Safety Report 12896770 (Version 1)
Quarter: 2016Q4

REPORT INFORMATION
  Report Type: Spontaneous
  Country: CA (occurrence: CA)
  Receive Date: 20161031
  Receipt Date: 20161031
  Transmission Date: 20170207
  Serious: Yes (Other)
  Sender: FDA-Public Use
  Company Number: PHHY2016CA148381

PATIENT
  Age: 62 Year
  Sex: Male

DRUGS (3)
  1. RITUXAN [Suspect]
     Active Substance: RITUXIMAB
     Indication: PEMPHIGUS
     Dosage: 1000 MG, CYCLIC
     Route: 042
     Dates: start: 20130613
  2. MYFORTIC [Suspect]
     Active Substance: MYCOPHENOLATE SODIUM
     Indication: PEMPHIGUS
     Dosage: UNK
     Route: 065
     Dates: start: 2012, end: 2013
  3. CELLCEPT [Suspect]
     Active Substance: MYCOPHENOLATE MOFETIL\MYCOPHENOLATE MOFETIL HYDROCHLORIDE
     Indication: PEMPHIGUS
     Dosage: UNK
     Route: 065
     Dates: start: 2012, end: 2013

REACTIONS (11)
  - Pemphigus [Not Recovered/Not Resolved]
  - Eyelid injury [Not Recovered/Not Resolved]
  - Eyelid oedema [Unknown]
  - Product use issue [Unknown]
  - Treatment failure [Unknown]
  - Skin exfoliation [Unknown]
  - Pain [Unknown]
  - Oral mucosal blistering [Not Recovered/Not Resolved]
  - Blister [Not Recovered/Not Resolved]
  - Infection [Unknown]
  - Erythema [Unknown]

NARRATIVE: CASE EVENT DATE: 2012
